FAERS Safety Report 5076676-5 (Version None)
Quarter: 2006Q3

REPORT INFORMATION
  Report Type: 
  Country: None (occurrence: None)
  Receive Date: 20060810
  Receipt Date: 20060807
  Transmission Date: 20061208
  Serious: Yes (Life-Threatening, Hospitalization)
  Sender: FDA-Public Use
  Company Number: PHRM2006FR02282

PATIENT
  Age: 96 Year
  Sex: Female
  Weight: 37 kg

DRUGS (5)
  1. TAREG [Suspect]
     Indication: HYPERTENSION
     Dosage: 160 MG/DAY
     Route: 048
     Dates: end: 20060619
  2. PNEUMOREL [Concomitant]
     Dosage: 2 DF/DAY
     Route: 048
     Dates: end: 20060619
  3. TRIAMTERENE AND HYDROCHLOROTHIAZIDE [Suspect]
     Indication: HYPERTENSION
     Dosage: 1 DF, QD
     Route: 048
     Dates: end: 20060619
  4. LERCAN [Concomitant]
     Indication: HYPERTENSION
     Dosage: 1 DF, QD
     Dates: end: 20060620
  5. DAONIL [Concomitant]
     Indication: DIABETES MELLITUS
     Dosage: 1.25 MG, QD
     Route: 048
     Dates: end: 20060619

REACTIONS (7)
  - BLOOD CREATININE INCREASED [None]
  - BLOOD UREA INCREASED [None]
  - CEREBROVASCULAR ACCIDENT [None]
  - CREATININE RENAL CLEARANCE DECREASED [None]
  - ELECTROCARDIOGRAM ABNORMAL [None]
  - HYPERKALAEMIA [None]
  - RENAL FAILURE [None]
